FAERS Safety Report 9063895 (Version 1)
Quarter: 2013Q1

REPORT INFORMATION
  Report Type: Report from Study
  Country: US (occurrence: US)
  Receive Date: 20130131
  Receipt Date: 20130131
  Transmission Date: 20140127
  Serious: No
  Sender: FDA-Public Use
  Company Number: US-ABBOTT-12P-163-0980994-00

PATIENT
  Age: 32 Year
  Sex: Female

DRUGS (10)
  1. HUMIRA PEN [Suspect]
     Indication: CROHN^S DISEASE
     Dosage: LOADING DOSE
     Route: 058
     Dates: start: 20120913
  2. HUMIRA PEN [Suspect]
     Route: 058
     Dates: start: 20120927, end: 20120927
  3. HUMIRA PEN [Suspect]
     Route: 058
     Dates: start: 20121012
  4. ASPIRIN [Concomitant]
     Indication: COAGULOPATHY
  5. AZATHIOPRINE [Concomitant]
     Indication: CROHN^S DISEASE
  6. FLINTSTONE VITAMINS W/IRON [Concomitant]
     Indication: VITAMIN SUPPLEMENTATION
  7. ZYRTEC [Concomitant]
     Indication: SEASONAL ALLERGY
  8. XANAX [Concomitant]
     Indication: ANXIETY
  9. IRON INFUSIONS [Concomitant]
     Indication: BLOOD IRON DECREASED
     Dates: start: 20120914
  10. IRON INFUSIONS [Concomitant]
     Indication: SERUM FERRITIN DECREASED

REACTIONS (9)
  - Fatigue [Recovering/Resolving]
  - Nausea [Recovering/Resolving]
  - Headache [Recovering/Resolving]
  - Somnolence [Recovering/Resolving]
  - Streptococcal infection [Recovered/Resolved]
  - Oropharyngeal pain [Not Recovered/Not Resolved]
  - Cough [Not Recovered/Not Resolved]
  - Injection site pain [Recovered/Resolved]
  - Infectious mononucleosis [Not Recovered/Not Resolved]
